FAERS Safety Report 11491546 (Version 2)
Quarter: 2015Q3

REPORT INFORMATION
  Report Type: Spontaneous
  Country: US (occurrence: US)
  Receive Date: 20150910
  Receipt Date: 20150910
  Transmission Date: 20151125
  Serious: Yes (Hospitalization, Other)
  Sender: FDA-Public Use
  Company Number: US-SMITH AND NEPHEW, INC-2015SMT00287

PATIENT
  Sex: Female

DRUGS (1)
  1. REGRANEX [Suspect]
     Active Substance: BECAPLERMIN
     Indication: SKIN ULCER

REACTIONS (5)
  - Angiopathy [Unknown]
  - Wound complication [Unknown]
  - Application site infection [Unknown]
  - Hospitalisation [Recovered/Resolved]
  - Drug ineffective for unapproved indication [Unknown]
